FAERS Safety Report 8214644-2 (Version None)
Quarter: 2012Q1

REPORT INFORMATION
  Report Type: 
  Country: None (occurrence: None)
  Receive Date: 20120316
  Receipt Date: 20120307
  Transmission Date: 20120608
  Serious: Yes (Death)
  Sender: FDA-Public Use
  Company Number: SK-CELGENEUS-260-21880-11110795

PATIENT

DRUGS (2)
  1. REVLIMID [Suspect]
     Indication: MULTIPLE MYELOMA
     Route: 048
  2. CORTICOSTEROID [Concomitant]
     Route: 065

REACTIONS (7)
  - NERVOUS SYSTEM DISORDER [None]
  - THROMBOCYTOPENIA [None]
  - ADVERSE EVENT [None]
  - CARDIOVASCULAR DISORDER [None]
  - DEATH [None]
  - NEUTROPENIA [None]
  - FATIGUE [None]
